FAERS Safety Report 20328418 (Version 1)
Quarter: 2022Q1

REPORT INFORMATION
  Report Type: Spontaneous
  Country: US (occurrence: None)
  Receive Date: 20220111
  Receipt Date: 20220111
  Transmission Date: 20220423
  Serious: No
  Sender: FDA-Public Use
  Company Number: None

PATIENT
  Age: 57 Year
  Sex: Female

DRUGS (2)
  1. DEVICE [Suspect]
     Active Substance: DEVICE
     Indication: Pulmonary arterial hypertension
     Dosage: OTHER FREQUENCY : CONTINUOUS ;?
     Route: 042
     Dates: start: 20190204
  2. TREPROSTINIL [Suspect]
     Active Substance: TREPROSTINIL
     Indication: Pulmonary arterial hypertension
     Dosage: DOSE OR AMOUNT: 55NG/KG/MIN?FREQUENCY: CONTINUOUS
     Route: 042
     Dates: start: 20190204

REACTIONS (2)
  - Inappropriate schedule of product administration [None]
  - Device malfunction [None]

NARRATIVE: CASE EVENT DATE: 20210106
